FAERS Safety Report 24181291 (Version 1)
Quarter: 2024Q3

REPORT INFORMATION
  Report Type: Spontaneous
  Country: SE (occurrence: SE)
  Receive Date: 20240807
  Receipt Date: 20240807
  Transmission Date: 20241016
  Serious: Yes (Hospitalization, Other)
  Sender: ABBVIE
  Company Number: SE-ABBVIE-5865423

PATIENT
  Sex: Female

DRUGS (1)
  1. VENETOCLAX [Suspect]
     Active Substance: VENETOCLAX
     Indication: Chronic lymphocytic leukaemia
     Route: 048

REACTIONS (8)
  - Deafness [Unknown]
  - Orthostatic hypotension [Unknown]
  - Weight decreased [Unknown]
  - Diarrhoea [Unknown]
  - Decreased appetite [Unknown]
  - Faeces discoloured [Unknown]
  - Hypoaesthesia [Unknown]
  - Syncope [Unknown]
